FAERS Safety Report 5088740-5 (Version None)
Quarter: 2006Q3

REPORT INFORMATION
  Report Type: 
  Country: None (occurrence: None)
  Receive Date: 20060825
  Receipt Date: 20060627
  Transmission Date: 20061208
  Serious: Yes (Other)
  Sender: FDA-Public Use
  Company Number: 452851

PATIENT
  Sex: Female

DRUGS (2)
  1. EUCARDIC [Suspect]
     Indication: DRUG USE FOR UNKNOWN INDICATION
     Route: 065
  2. CLOMIPRAMINE HCL [Suspect]

REACTIONS (1)
  - CEREBROVASCULAR ACCIDENT [None]
